FAERS Safety Report 5723591-7 (Version None)
Quarter: 2008Q2

REPORT INFORMATION
  Report Type: 
  Country: None (occurrence: None)
  Receive Date: 20080430
  Receipt Date: 20080430
  Transmission Date: 20081010
  Serious: Yes (Death, Hospitalization)
  Sender: FDA-Public Use
  Company Number: None

PATIENT
  Age: 79 Year
  Sex: Female
  Weight: 63.5036 kg

DRUGS (1)
  1. DIGITEK .125 [Suspect]
     Indication: HEART RATE IRREGULAR
     Dosage: ONE TABLET ONCE/DAY PO
     Route: 048
     Dates: start: 20071101, end: 20080417

REACTIONS (2)
  - BASAL GANGLIA HAEMORRHAGE [None]
  - HAEMORRHAGIC STROKE [None]
